FAERS Safety Report 13684125 (Version 1)
Quarter: 2017Q2

REPORT INFORMATION
  Report Type: Spontaneous
  Country: US (occurrence: US)
  Receive Date: 20170623
  Receipt Date: 20170623
  Transmission Date: 20170830
  Serious: No
  Sender: FDA-Public Use
  Company Number: US-ASTELLAS-2017US009306

PATIENT
  Age: 74 Year
  Sex: Male

DRUGS (7)
  1. WELLBUTRIN [Concomitant]
     Active Substance: BUPROPION HYDROCHLORIDE
     Indication: DEPRESSION
     Dosage: UNK UNK, UNKNOWN FREQ.
     Route: 065
  2. MYRBETRIQ [Suspect]
     Active Substance: MIRABEGRON
     Indication: PRODUCT USED FOR UNKNOWN INDICATION
     Route: 048
     Dates: start: 2017
  3. DESYREL [Concomitant]
     Active Substance: TRAZODONE HYDROCHLORIDE
     Indication: DEPRESSION
     Dosage: UNK UNK, UNKNOWN FREQ.
     Route: 065
  4. VESICARE [Suspect]
     Active Substance: SOLIFENACIN SUCCINATE
     Indication: PRODUCT USED FOR UNKNOWN INDICATION
     Route: 048
     Dates: start: 2017
  5. XANAX [Concomitant]
     Active Substance: ALPRAZOLAM
     Indication: PRODUCT USED FOR UNKNOWN INDICATION
     Dosage: UNK UNK, UNKNOWN FREQ.
     Route: 065
  6. VESICARE [Suspect]
     Active Substance: SOLIFENACIN SUCCINATE
     Route: 048
     Dates: start: 20170307
  7. PROZAC [Concomitant]
     Active Substance: FLUOXETINE HYDROCHLORIDE
     Indication: PRODUCT USED FOR UNKNOWN INDICATION
     Dosage: UNK UNK, UNKNOWN FREQ.
     Route: 065

REACTIONS (16)
  - Confusional state [Recovered/Resolved]
  - Visual acuity reduced [Unknown]
  - Rash [Not Recovered/Not Resolved]
  - Bone pain [Recovering/Resolving]
  - Vomiting [Recovered/Resolved]
  - Balance disorder [Recovering/Resolving]
  - Lethargy [Unknown]
  - Cognitive disorder [Recovered/Resolved]
  - Dysarthria [Recovering/Resolving]
  - Pain in extremity [Not Recovered/Not Resolved]
  - Cystitis [Unknown]
  - Headache [Not Recovered/Not Resolved]
  - Incontinence [Recovering/Resolving]
  - Chromaturia [Unknown]
  - Abdominal pain upper [Recovered/Resolved]
  - Gait disturbance [Recovering/Resolving]
